FAERS Safety Report 25778768 (Version 1)
Quarter: 2025Q3

REPORT INFORMATION
  Report Type: Spontaneous
  Country: ID (occurrence: ID)
  Receive Date: 20250909
  Receipt Date: 20250909
  Transmission Date: 20251021
  Serious: Yes (Death, Life-Threatening, Other)
  Sender: PFIZER
  Company Number: ID-PFIZER INC-PV202500107713

PATIENT
  Age: 65 Year
  Sex: Female

DRUGS (2)
  1. METHYLPREDNISOLONE ACETATE [Suspect]
     Active Substance: METHYLPREDNISOLONE ACETATE
     Indication: Asthma
  2. ALBUTEROL SULFATE [Suspect]
     Active Substance: ALBUTEROL SULFATE
     Indication: Asthma

REACTIONS (2)
  - Anaphylactic shock [Fatal]
  - Drug ineffective [Unknown]
